FAERS Safety Report 8889869 (Version 1)
Quarter: 2012Q4

REPORT INFORMATION
  Report Type: 
  Country: US (occurrence: US)
  Receive Date: 20121107
  Receipt Date: 20121107
  Transmission Date: 20130627
  Serious: No
  Sender: FDA-Public Use
  Company Number: US-009507513-1211USA000882

PATIENT
  Sex: Male

DRUGS (2)
  1. SINGULAIR [Suspect]
     Indication: RHINITIS
     Dosage: 4 mg, qd
     Route: 048
     Dates: start: 2010, end: 20121001
  2. ZYRTEC [Concomitant]

REACTIONS (1)
  - Aggression [Recovering/Resolving]
